FAERS Safety Report 4796668-0 (Version None)
Quarter: 2005Q4

REPORT INFORMATION
  Report Type: 
  Country: None (occurrence: None)
  Receive Date: 20051006
  Receipt Date: 20051006
  Transmission Date: 20060501
  Serious: Yes (Life-Threatening, Hospitalization)
  Sender: FDA-Public Use
  Company Number: None

PATIENT
  Age: 47 Year
  Sex: Male

DRUGS (13)
  1. HUMALOG [Suspect]
     Indication: DIABETES MELLITUS INSULIN-DEPENDENT
     Dosage: 20 UNITS BEFORE BREAKFAST ; 10 UNITS BEFORE LUNCH ; 14 UNITS BEFORE DINNER
  2. LANTUS [Suspect]
     Indication: DIABETES MELLITUS INSULIN-DEPENDENT
     Dosage: 25 UNITS SQ @ 1700
     Route: 058
  3. ASPIRIN [Concomitant]
  4. BETHANECHOL [Concomitant]
  5. CELEXA [Concomitant]
  6. FLOMAX [Concomitant]
  7. LOPRESSOR [Concomitant]
  8. PLAVIX [Concomitant]
  9. PREDNISONE [Concomitant]
  10. PREVACID [Concomitant]
  11. TACROLIMUS [Concomitant]
  12. FINASTERIDE [Concomitant]
  13. AZATHIOPRINE [Concomitant]

REACTIONS (5)
  - BLOOD GLUCOSE DECREASED [None]
  - DYSPNOEA [None]
  - HEADACHE [None]
  - LOSS OF CONSCIOUSNESS [None]
  - SYNCOPE [None]
